FAERS Safety Report 9422888 (Version 1)
Quarter: 2013Q3

REPORT INFORMATION
  Report Type: Report from Study
  Country: US (occurrence: US)
  Receive Date: 20130726
  Receipt Date: 20130726
  Transmission Date: 20140515
  Serious: Yes (Hospitalization)
  Sender: FDA-Public Use
  Company Number: US-JNJFOC-20130209088

PATIENT
  Age: 64 Year
  Sex: Male

DRUGS (6)
  1. REMICADE [Suspect]
     Indication: CROHN^S DISEASE
     Route: 042
     Dates: start: 20130220
  2. REMICADE [Suspect]
     Indication: CROHN^S DISEASE
     Route: 042
  3. REMICADE [Suspect]
     Indication: CROHN^S DISEASE
     Route: 042
     Dates: start: 20130119
  4. REMICADE [Suspect]
     Indication: CROHN^S DISEASE
     Route: 042
     Dates: start: 2010
  5. OXYCODONE [Concomitant]
     Indication: PAIN
     Route: 065
  6. MORPHINE [Concomitant]
     Indication: PAIN
     Route: 065

REACTIONS (3)
  - Pulmonary oedema [Not Recovered/Not Resolved]
  - Anal fistula [Unknown]
  - Drug effect decreased [Unknown]
